FAERS Safety Report 5249513-3 (Version None)
Quarter: 2007Q1

REPORT INFORMATION
  Report Type: 
  Country: None (occurrence: None)
  Receive Date: 20070228
  Receipt Date: 20060216
  Transmission Date: 20070707
  Serious: No
  Sender: FDA-Public Use
  Company Number: US-GLAXOSMITHKLINE-A0056039A

PATIENT
  Age: 49 Year
  Sex: Male

DRUGS (5)
  1. IMITREX [Suspect]
     Indication: MIGRAINE
     Route: 058
  2. IMITREX [Suspect]
     Dosage: 25MG AS REQUIRED
     Route: 048
     Dates: start: 19950101
  3. IMITREX [Suspect]
     Route: 045
  4. IMITREX [Suspect]
     Indication: HEADACHE
     Route: 065
  5. NO CONCURRENT MEDICATIONS [Concomitant]

REACTIONS (2)
  - BACK PAIN [None]
  - MIGRAINE [None]
